FAERS Safety Report 14377604 (Version 1)
Quarter: 2018Q1

REPORT INFORMATION
  Report Type: Spontaneous
  Country: US (occurrence: US)
  Receive Date: 20180111
  Receipt Date: 20180111
  Transmission Date: 20180509
  Serious: Yes (Other)
  Sender: FDA-Public Use
  Company Number: US-MYLANLABS-2017M1074468

PATIENT
  Sex: Female

DRUGS (2)
  1. CLONAZEPAM TABLETS, USP [Suspect]
     Active Substance: CLONAZEPAM
     Indication: ANXIETY
     Dosage: 2 MG, QID
  2. CLONAZEPAM TABLETS, USP [Suspect]
     Active Substance: CLONAZEPAM
     Dosage: UNK

REACTIONS (9)
  - Neoplasm malignant [Unknown]
  - Product quality issue [Unknown]
  - Haematuria [Unknown]
  - Nephrolithiasis [Unknown]
  - Product taste abnormal [Not Recovered/Not Resolved]
  - Tremor [Unknown]
  - Feeling abnormal [Unknown]
  - Product tampering [Not Recovered/Not Resolved]
  - Eructation [Unknown]
